FAERS Safety Report 4733252-9 (Version None)
Quarter: 2005Q3

REPORT INFORMATION
  Report Type: 
  Country: None (occurrence: None)
  Receive Date: 20050803
  Receipt Date: 20050621
  Transmission Date: 20060218
  Serious: Yes (Other)
  Sender: FDA-Public Use
  Company Number: BE-ROCHE-408811

PATIENT
  Age: 61 Year
  Sex: Male
  Weight: 91.5 kg

DRUGS (5)
  1. VESANOID [Suspect]
     Dosage: THERAPY STATED AS 15 DAYS PER 3 MONTHS
     Route: 048
     Dates: start: 20050219, end: 20050302
  2. VESANOID [Suspect]
     Route: 048
     Dates: start: 20050318, end: 20050601
  3. ISOTEN [Concomitant]
     Route: 048
     Dates: start: 20040815
  4. LASIX [Concomitant]
     Route: 048
     Dates: start: 20040815
  5. TRAMADOL HCL [Concomitant]
     Route: 048
     Dates: start: 20040815

REACTIONS (2)
  - GYNAECOMASTIA [None]
  - SEBORRHOEIC DERMATITIS [None]
